FAERS Safety Report 23866217 (Version 1)
Quarter: 2024Q2

REPORT INFORMATION
  Report Type: Spontaneous
  Country: IT (occurrence: IT)
  Receive Date: 20240517
  Receipt Date: 20240517
  Transmission Date: 20240716
  Serious: Yes (Hospitalization, Other)
  Sender: FDA-Public Use
  Company Number: IT-MINISAL02-983537

PATIENT
  Age: 77 Year
  Sex: Female

DRUGS (9)
  1. HYDROCHLOROTHIAZIDE\OLMESARTAN MEDOXOMIL [Suspect]
     Active Substance: HYDROCHLOROTHIAZIDE\OLMESARTAN MEDOXOMIL
     Indication: Product used for unknown indication
     Dosage: 1 DOSAGE FORM, ONCE A DAY (40+25 MG)
     Route: 048
  2. ALLOPURINOL [Concomitant]
     Active Substance: ALLOPURINOL
     Indication: Product used for unknown indication
     Dosage: 1 DOSAGE FORM, ONCE A DAY 150MG
     Route: 065
  3. BISOPROLOL FUMARATE [Concomitant]
     Active Substance: BISOPROLOL FUMARATE
     Indication: Product used for unknown indication
     Dosage: 2 DOSAGE FORM, ONCE A DAY (1.25MG)
     Route: 065
  4. ESOMEPRAZOLE [Concomitant]
     Active Substance: ESOMEPRAZOLE
     Indication: Product used for unknown indication
     Dosage: 1 DOSAGE FORM, ONCE A DAY 20MG
     Route: 065
  5. Folina [Concomitant]
     Indication: Product used for unknown indication
     Dosage: 1 DOSAGE FORM, ONCE A DAY 5MG
     Route: 065
  6. LACIDIPINA [Concomitant]
     Indication: Product used for unknown indication
     Dosage: 1 DOSAGE FORM, ONCE A DAY 4MG
     Route: 065
  7. NEBIVOLOL HYDROCHLORIDE [Concomitant]
     Active Substance: NEBIVOLOL HYDROCHLORIDE
     Indication: Product used for unknown indication
     Dosage: 1 DOSAGE FORM, ONCE A DAY 5MG
     Route: 065
  8. SIMVASTATIN [Concomitant]
     Active Substance: SIMVASTATIN
     Indication: Product used for unknown indication
     Dosage: 1 DOSAGE FORM, ONCE A DAY 20 MG
     Route: 065
  9. METFORMIN HYDROCHLORIDE [Concomitant]
     Active Substance: METFORMIN HYDROCHLORIDE
     Indication: Product used for unknown indication
     Dosage: 3 DOSAGE FORM, ONCE A DAY 1G
     Route: 065

REACTIONS (3)
  - Chronic kidney disease [Unknown]
  - Blood urea increased [Unknown]
  - Blood creatinine increased [Unknown]

NARRATIVE: CASE EVENT DATE: 20240428
